FAERS Safety Report 26107391 (Version 1)
Quarter: 2025Q4

REPORT INFORMATION
  Report Type: Spontaneous
  Country: US (occurrence: US)
  Receive Date: 20251201
  Receipt Date: 20251201
  Transmission Date: 20260118
  Serious: Yes (Other)
  Sender: SANDOZ
  Company Number: US-SANDOZ-SDZ2025US089169

PATIENT

DRUGS (1)
  1. ESTRADIOL [Suspect]
     Active Substance: ESTRADIOL
     Indication: Product used for unknown indication
     Dosage: UNK, STRENGTH- 0.1MG/24
     Route: 062

REACTIONS (3)
  - Hysterectomy [Unknown]
  - Product availability issue [Unknown]
  - Product packaging quantity issue [Unknown]
